FAERS Safety Report 4433030-4 (Version None)
Quarter: 2004Q3

REPORT INFORMATION
  Report Type: 
  Country: None (occurrence: None)
  Receive Date: 20040721
  Receipt Date: 20030818
  Transmission Date: 20050211
  Serious: Yes (Life-Threatening)
  Sender: FDA-Public Use
  Company Number: WAES 0308USA01835

PATIENT
  Age: 37 Year
  Sex: Male

DRUGS (2)
  1. VIOXX [Suspect]
     Indication: MYALGIA
     Dosage: 50 MG/DAILY/PO; 25 MG/DAILY/PO
     Route: 048
     Dates: start: 20030723, end: 20030724
  2. VIOXX [Suspect]
     Indication: MYALGIA
     Dosage: 50 MG/DAILY/PO; 25 MG/DAILY/PO
     Route: 048
     Dates: start: 20030725, end: 20030727

REACTIONS (2)
  - ALANINE AMINOTRANSFERASE INCREASED [None]
  - ASPARTATE AMINOTRANSFERASE INCREASED [None]
